FAERS Safety Report 10311458 (Version 2)
Quarter: 2014Q3

REPORT INFORMATION
  Report Type: Spontaneous
  Country: NL (occurrence: NL)
  Receive Date: 20140717
  Receipt Date: 20140728
  Transmission Date: 20150326
  Serious: Yes (Death, Hospitalization, Other)
  Sender: FDA-Public Use
  Company Number: NL-JNJFOC-20140705106

PATIENT
  Sex: Male
  Weight: 98 kg

DRUGS (12)
  1. NOVORAPID [Concomitant]
     Active Substance: INSULIN ASPART
     Route: 065
  2. ZOLADEX [Concomitant]
     Active Substance: GOSERELIN ACETATE
     Dosage: DEPOT
     Route: 065
  3. PANTOZOL [Concomitant]
     Active Substance: PANTOPRAZOLE SODIUM
     Route: 065
  4. APROVEL [Concomitant]
     Active Substance: IRBESARTAN
     Dosage: MORE THAN 1 YEAR
     Route: 048
  5. ZYTIGA [Suspect]
     Active Substance: ABIRATERONE ACETATE
     Indication: PROSTATE CANCER
     Route: 048
     Dates: start: 20140424, end: 20140508
  6. LEVEMIR [Concomitant]
     Active Substance: INSULIN DETEMIR
     Route: 065
  7. ASCAL [Concomitant]
     Active Substance: CARBASALATE
     Dosage: MORE THAN 1 YEAR
     Route: 048
  8. BUMETANIDE. [Concomitant]
     Active Substance: BUMETANIDE
     Dosage: MORE THAN 1 YEAR
     Route: 048
  9. ATORVASTATIN [Concomitant]
     Active Substance: ATORVASTATIN
     Route: 065
  10. INSPRA [Concomitant]
     Active Substance: EPLERENONE
     Dosage: MORE THAN 1YEAR
     Route: 048
  11. CALCICHEW D3 [Concomitant]
     Active Substance: CALCIUM\CHOLECALCIFEROL
     Route: 065
  12. SELOKEEN [Concomitant]
     Active Substance: METOPROLOL
     Route: 065

REACTIONS (2)
  - Cardiac failure [Fatal]
  - Prostate cancer metastatic [Unknown]
